FAERS Safety Report 8583802 (Version 8)
Quarter: 2022Q1

REPORT INFORMATION
  Report Type: Spontaneous
  Country: US (occurrence: US)
  Receive Date: 20120529
  Receipt Date: 20220215
  Transmission Date: 20220423
  Serious: Yes (Hospitalization, Other)
  Sender: FDA-Public Use
  Company Number: US-ROCHE-1071180

PATIENT
  Sex: Female

DRUGS (19)
  1. BONIVA [Suspect]
     Active Substance: IBANDRONATE SODIUM
     Indication: Osteoporosis
     Route: 048
     Dates: start: 20080814, end: 20111110
  2. BONIVA [Suspect]
     Active Substance: IBANDRONATE SODIUM
     Indication: Osteopenia
  3. FOSAMAX [Suspect]
     Active Substance: ALENDRONATE SODIUM
     Indication: Osteoporosis
     Route: 048
     Dates: start: 20010202, end: 20091012
  4. FOSAMAX [Suspect]
     Active Substance: ALENDRONATE SODIUM
     Indication: Osteopenia
  5. ALENDRONATE SODIUM [Suspect]
     Active Substance: ALENDRONATE SODIUM
     Indication: Osteoporosis
     Route: 048
     Dates: start: 20080502, end: 20080814
  6. ALENDRONATE SODIUM [Suspect]
     Active Substance: ALENDRONATE SODIUM
     Indication: Osteopenia
  7. ACIPHEX [Concomitant]
     Active Substance: RABEPRAZOLE SODIUM
  8. ZOCOR [Concomitant]
     Active Substance: SIMVASTATIN
  9. CLINDAMYCIN [Concomitant]
     Active Substance: CLINDAMYCIN
  10. MOXIFLOXACIN HYDROCHLORIDE [Concomitant]
     Active Substance: MOXIFLOXACIN HYDROCHLORIDE
  11. CIPRO [Concomitant]
     Active Substance: CIPROFLOXACIN HYDROCHLORIDE
     Route: 048
  12. VITAMIN D3 [Concomitant]
     Active Substance: CHOLECALCIFEROL
     Dosage: 2000 IU
  13. MIRALAX [Concomitant]
     Active Substance: POLYETHYLENE GLYCOL 3350
  14. AURANOFIN [Concomitant]
     Active Substance: AURANOFIN
  15. PREDNISONE [Concomitant]
     Active Substance: PREDNISONE
     Route: 048
  16. ACETAMINOPHEN\OXYCODONE HYDROCHLORIDE [Concomitant]
     Active Substance: ACETAMINOPHEN\OXYCODONE HYDROCHLORIDE
  17. ONDANSETRON [Concomitant]
     Active Substance: ONDANSETRON
     Indication: Nausea
  18. TUSSIONEX PENNKINETIC [Concomitant]
     Active Substance: CHLORPHENIRAMINE\HYDROCODONE
  19. AZITHROMYCIN [Concomitant]
     Active Substance: AZITHROMYCIN

REACTIONS (17)
  - Femur fracture [Unknown]
  - Low turnover osteopathy [Unknown]
  - Anxiety [Unknown]
  - Emotional distress [Unknown]
  - Urinary tract infection [Unknown]
  - Hypokalaemia [Unknown]
  - Dehydration [Unknown]
  - Pseudomembranous colitis [Unknown]
  - Haemorrhoids [Unknown]
  - Appendicitis perforated [Unknown]
  - Anaemia [Unknown]
  - Fall [Unknown]
  - Flatulence [Unknown]
  - Breast cancer [Unknown]
  - Obsessive-compulsive disorder [Unknown]
  - Meniscus injury [Unknown]
  - Femur fracture [Unknown]

NARRATIVE: CASE EVENT DATE: 20090101
